FAERS Safety Report 4552459-7 (Version None)
Quarter: 2005Q1

REPORT INFORMATION
  Report Type: 
  Country: None (occurrence: None)
  Receive Date: 20050112
  Receipt Date: 20041229
  Transmission Date: 20050727
  Serious: Yes (Hospitalization, Disabling, Other)
  Sender: FDA-Public Use
  Company Number: US_011279599

PATIENT
  Sex: Female

DRUGS (2)
  1. HUMALOG [Suspect]
     Indication: DIABETES MELLITUS
  2. LANTUS [Concomitant]

REACTIONS (22)
  - ABORTION SPONTANEOUS [None]
  - APHASIA [None]
  - BREAST INFECTION [None]
  - BREAST NEOPLASM [None]
  - CARDIAC DISORDER [None]
  - CARDIAC MURMUR [None]
  - CONVULSION [None]
  - CYST [None]
  - DEVICE FAILURE [None]
  - DIABETES MELLITUS INADEQUATE CONTROL [None]
  - DRUG EXPOSURE DURING PREGNANCY [None]
  - DYSPNOEA [None]
  - ENCEPHALITIS VIRAL [None]
  - ENCEPHALOPATHY [None]
  - HEARING IMPAIRED [None]
  - HYPOACUSIS [None]
  - INJECTION SITE HAEMORRHAGE [None]
  - INJECTION SITE PAIN [None]
  - LOCALISED INFECTION [None]
  - PHARMACEUTICAL PRODUCT COMPLAINT [None]
  - SLEEP APNOEA SYNDROME [None]
  - VISUAL FIELD DEFECT [None]
